FAERS Safety Report 7332749-5 (Version None)
Quarter: 2011Q1

REPORT INFORMATION
  Report Type: 
  Country: None (occurrence: None)
  Receive Date: 20110222
  Receipt Date: 20110209
  Transmission Date: 20110831
  Serious: Yes (Hospitalization, Other)
  Sender: FDA-Public Use
  Company Number: 2011MA001241

PATIENT
  Age: 56 Year
  Sex: Male

DRUGS (5)
  1. AMANTADINE HCL [Concomitant]
  2. CARBIDOPA AND LEVODOPA [Suspect]
     Indication: PARKINSON'S DISEASE
     Dosage: 100 MG;Q6H; PO
     Route: 048
  3. SELEGILINE [Concomitant]
  4. SILDENAFIL [Concomitant]
  5. BROMOCRIPTINE MESYLATE [Concomitant]

REACTIONS (6)
  - ERECTION INCREASED [None]
  - SELF-MEDICATION [None]
  - CHOREOATHETOSIS [None]
  - DRUG INTERACTION [None]
  - DRUG ABUSE [None]
  - ANXIETY [None]
